FAERS Safety Report 5597013-3 (Version None)
Quarter: 2007Q4

REPORT INFORMATION
  Report Type: 
  Country: None (occurrence: None)
  Receive Date: 20071220
  Receipt Date: 20070725
  Transmission Date: 20080405
  Serious: Yes (Other)
  Sender: FDA-Public Use
  Company Number: 508550

PATIENT
  Sex: Female

DRUGS (1)
  1. NAPROSYN [Suspect]
     Indication: ARTHRITIS
     Dosage: 500 MG 2 PER DAY
     Dates: start: 20070605, end: 20070617

REACTIONS (2)
  - EROSIVE OESOPHAGITIS [None]
  - GASTROINTESTINAL EROSION [None]
